FAERS Safety Report 26045877 (Version 1)
Quarter: 2025Q4

REPORT INFORMATION
  Report Type: Spontaneous
  Country: EU (occurrence: EU)
  Receive Date: 20251114
  Receipt Date: 20251114
  Transmission Date: 20260118
  Serious: Yes (Other)
  Sender: RANBAXY
  Company Number: EU-SUN PHARMACEUTICAL INDUSTRIES LTD-2025R1-511566

PATIENT
  Age: 68 Year
  Sex: Male

DRUGS (2)
  1. FOLIC ACID [Suspect]
     Active Substance: FOLIC ACID
     Indication: Toxic optic neuropathy
     Dosage: UNK
     Route: 065
  2. COBALAMIN [Suspect]
     Active Substance: COBALAMIN
     Indication: Toxic optic neuropathy
     Dosage: UNK
     Route: 048

REACTIONS (1)
  - Treatment failure [Unknown]
